FAERS Safety Report 19513168 (Version 2)
Quarter: 2021Q3

REPORT INFORMATION
  Report Type: Spontaneous
  Country: FR (occurrence: FR)
  Receive Date: 20210709
  Receipt Date: 20210719
  Transmission Date: 20211014
  Serious: Yes (Hospitalization, Other)
  Sender: FDA-Public Use
  Company Number: FR-PFIZER INC-2021798752

PATIENT
  Age: 46 Year
  Sex: Male

DRUGS (1)
  1. DOXORUBICIN HCL [Suspect]
     Active Substance: DOXORUBICIN HYDROCHLORIDE
     Indication: FIBROUS HISTIOCYTOMA
     Dosage: 60 MG/M2, CYCLIC (EVERY THREE WEEKS/TOTAL OF SEVEN INJECTIONS)
     Route: 042
     Dates: start: 201809, end: 2019

REACTIONS (5)
  - Oral fungal infection [Recovered/Resolved]
  - Decreased appetite [Recovered/Resolved]
  - Constipation [Recovered/Resolved]
  - Asthenia [Recovered/Resolved]
  - Alopecia [Recovered/Resolved]
